FAERS Safety Report 7130660-6 (Version None)
Quarter: 2010Q4

REPORT INFORMATION
  Report Type: 
  Country: None (occurrence: None)
  Receive Date: 20101201
  Receipt Date: 20101125
  Transmission Date: 20110411
  Serious: Yes (Death, Other)
  Sender: FDA-Public Use
  Company Number: PL-PFIZER INC-PL-WYE-H17426510

PATIENT
  Age: 41 Year
  Sex: Male

DRUGS (9)
  1. TYGACIL [Suspect]
     Indication: INFECTION
  2. TYGACIL [Suspect]
     Indication: CANDIDIASIS
  3. TAZOCIN [Suspect]
  4. DIFLUCAN [Suspect]
  5. ZYVOX [Suspect]
  6. VFEND [Suspect]
  7. METRONIDAZOLE [Suspect]
     Route: 065
  8. MEROPENEM [Suspect]
     Route: 065
  9. BISEPTOL [Suspect]
     Route: 065

REACTIONS (2)
  - DISEASE PROGRESSION [None]
  - PATHOGEN RESISTANCE [None]
